FAERS Safety Report 14195953 (Version 1)
Quarter: 2017Q4

REPORT INFORMATION
  Report Type: Spontaneous
  Country: None (occurrence: US)
  Receive Date: 20171116
  Receipt Date: 20171116
  Transmission Date: 20180321
  Serious: No
  Sender: FDA-Public Use
  Company Number: US-DUSA PHARMACEUTICALS, INC.-2034334

PATIENT
  Age: 54 Year
  Sex: Male

DRUGS (1)
  1. LEVULAN KERASTICK [Suspect]
     Active Substance: AMINOLEVULINIC ACID HYDROCHLORIDE
     Indication: PHOTODERMATOSIS
     Route: 061
     Dates: start: 201703, end: 201703

REACTIONS (3)
  - Application site swelling [Unknown]
  - Application site erythema [Unknown]
  - Application site pain [Unknown]
